FAERS Safety Report 10627675 (Version 1)
Quarter: 2014Q4

REPORT INFORMATION
  Report Type: Spontaneous
  Country: US (occurrence: None)
  Receive Date: 20141203
  Receipt Date: 20141203
  Transmission Date: 20150529
  Serious: Yes (Life-Threatening, Hospitalization)
  Sender: FDA-Public Use
  Company Number: None

PATIENT
  Age: 60 Year
  Sex: Male
  Weight: 70.31 kg

DRUGS (1)
  1. TINNITUS RELIEF MAGNILIFE [Suspect]
     Active Substance: HOMEOPATHICS
     Indication: TINNITUS
     Dosage: TAKEN UNDER THE TONGUE
     Dates: start: 20141114, end: 20141117

REACTIONS (6)
  - Feeling abnormal [None]
  - Dizziness [None]
  - Product quality issue [None]
  - Extrasystoles [None]
  - Balance disorder [None]
  - Dysstasia [None]

NARRATIVE: CASE EVENT DATE: 20141111
